FAERS Safety Report 6049045-9 (Version None)
Quarter: 2009Q1

REPORT INFORMATION
  Report Type: 
  Country: None (occurrence: None)
  Receive Date: 20090123
  Receipt Date: 20090112
  Transmission Date: 20090719
  Serious: Yes (Hospitalization)
  Sender: FDA-Public Use
  Company Number: JP-ROCHE-607926

PATIENT
  Age: 33 Year
  Sex: Male

DRUGS (2)
  1. OSELTAMIVIR [Suspect]
     Indication: INFLUENZA
     Route: 065
  2. CEFCAPENE [Suspect]
     Indication: INFLUENZA
     Route: 065

REACTIONS (1)
  - PNEUMONITIS [None]
